FAERS Safety Report 10161745 (Version 1)
Quarter: 2014Q2

REPORT INFORMATION
  Report Type: Spontaneous
  Country: GB (occurrence: None)
  Receive Date: 20140507
  Receipt Date: 20140507
  Transmission Date: 20141212
  Serious: Yes (Other)
  Sender: FDA-Public Use
  Company Number: AUR-APL-2014-05227

PATIENT
  Age: 8 Year
  Sex: Male
  Weight: 25 kg

DRUGS (1)
  1. TERBINAFINE (TERBINAFINE) [Suspect]
     Indication: FUNGAL SKIN INFECTION
     Route: 048
     Dates: start: 20140222

REACTIONS (4)
  - Hypersensitivity [None]
  - Swelling face [None]
  - Erythema [None]
  - Facial pain [None]
